FAERS Safety Report 16069702 (Version 1)
Quarter: 2019Q1

REPORT INFORMATION
  Report Type: Spontaneous
  Country: US (occurrence: US)
  Receive Date: 20190314
  Receipt Date: 20190314
  Transmission Date: 20190418
  Serious: Yes (Other)
  Sender: FDA-Public Use
  Company Number: US-009507513-1903USA004290

PATIENT
  Sex: Female
  Weight: 65.77 kg

DRUGS (1)
  1. NUVARING [Suspect]
     Active Substance: ETHINYL ESTRADIOL\ETONOGESTREL
     Indication: CONTRACEPTION
     Dosage: 1 DOSAGE FORM
     Route: 067
     Dates: end: 2018

REACTIONS (4)
  - Cardiac operation [Recovered/Resolved]
  - Blood pressure decreased [Unknown]
  - Therapeutic response unexpected [Unknown]
  - Adverse event [Unknown]

NARRATIVE: CASE EVENT DATE: 2018
